FAERS Safety Report 8383104 (Version 3)
Quarter: 2012Q4

REPORT INFORMATION
  Report Type: 
  Country: FR (occurrence: US)
  Receive Date: 20120130
  Receipt Date: 20121003
  Transmission Date: 20130627
  Serious: Yes (Hospitalization, Other)
  Sender: FDA-Public Use
  Company Number: US-MERCK-1201USA02868

PATIENT
  Age: 53 None

DRUGS (5)
  1. JANUVIA [Suspect]
     Indication: TYPE 2 DIABETES MELLITUS
     Dosage: 50 mg, qd
     Route: 048
     Dates: start: 201107
  2. JANUVIA [Suspect]
     Dosage: 100 mg, qd
     Route: 048
  3. UNSPECIFIED INGREDIENT [Suspect]
     Dosage: UNK UNK, bid
  4. AMARYL [Suspect]
     Indication: TYPE 2 DIABETES MELLITUS
     Route: 048
     Dates: start: 201108
  5. AMARYL [Suspect]
     Dosage: 4 mg, bid
     Route: 048

REACTIONS (5)
  - Diabetes mellitus inadequate control [Unknown]
  - Staphylococcal infection [Unknown]
  - Myocardial infarction [Unknown]
  - Kidney infection [Unknown]
  - Blood creatinine increased [Unknown]
